FAERS Safety Report 5000021-4 (Version None)
Quarter: 2006Q2

REPORT INFORMATION
  Report Type: 
  Country: None (occurrence: None)
  Receive Date: 20060501
  Receipt Date: 20060419
  Transmission Date: 20061013
  Serious: Yes (Other)
  Sender: FDA-Public Use
  Company Number: 2006053911

PATIENT
  Age: 25 Year
  Sex: Female

DRUGS (3)
  1. CLINDAMYCIN HCL [Suspect]
     Indication: ILL-DEFINED DISORDER
     Dosage: ORAL
     Route: 048
     Dates: start: 20060419
  2. COUGHCODE (BROMISOVAL, DIHYDROCODEINE PHOSPHATE, DIPROPHYLLINE, METHYL [Concomitant]
  3. SURGAM (TIAPROFENIC ACID) [Concomitant]

REACTIONS (2)
  - BLISTER [None]
  - EYE SWELLING [None]
